FAERS Safety Report 8090600-2 (Version None)
Quarter: 2012Q1

REPORT INFORMATION
  Report Type: 
  Country: None (occurrence: None)
  Receive Date: 20120129
  Receipt Date: 20111113
  Transmission Date: 20120608
  Serious: No
  Sender: FDA-Public Use
  Company Number: US-ABBOTT-11P-163-0873984-00

PATIENT
  Age: 49 Year
  Sex: Female

DRUGS (2)
  1. HUMIRA [Suspect]
     Indication: PSORIASIS
     Dates: end: 20110901
  2. HUMIRA [Suspect]
     Dates: start: 20110901

REACTIONS (7)
  - BLOOD TRIGLYCERIDES INCREASED [None]
  - DRUG INEFFECTIVE [None]
  - INJECTION SITE PRURITUS [None]
  - URINARY INCONTINENCE [None]
  - BLOOD CHOLESTEROL INCREASED [None]
  - INJECTION SITE ERYTHEMA [None]
  - INJECTION SITE RASH [None]
